FAERS Safety Report 13753403 (Version 1)
Quarter: 2017Q3

REPORT INFORMATION
  Report Type: Spontaneous
  Country: DE (occurrence: DE)
  Receive Date: 20170714
  Receipt Date: 20170714
  Transmission Date: 20171127
  Serious: Yes (Life-Threatening)
  Sender: FDA-Public Use
  Company Number: DE-B. BRAUN MEDICAL INC.-2023367

PATIENT
  Age: 39 Year
  Sex: Male
  Weight: 92.5 kg

DRUGS (1)
  1. HEPARIN SODIUM AND DEXTROSE [Suspect]
     Active Substance: HEPARIN SODIUM
     Indication: ANTICOAGULANT THERAPY
     Route: 050

REACTIONS (1)
  - Thrombosis in device [None]

NARRATIVE: CASE EVENT DATE: 20170522
